FAERS Safety Report 4578470-8 (Version None)
Quarter: 2005Q1

REPORT INFORMATION
  Report Type: 
  Country: None (occurrence: None)
  Receive Date: 20050209
  Receipt Date: 20050127
  Transmission Date: 20050727
  Serious: Yes (Other)
  Sender: FDA-Public Use
  Company Number: 2004094499

PATIENT
  Age: 59 Year
  Sex: Male
  Weight: 113.3993 kg

DRUGS (13)
  1. CELEBREX [Suspect]
     Indication: OSTEOARTHRITIS
     Dosage: 200 MG (200 MG, 1 IN 1 D), ORAL
     Route: 048
     Dates: start: 20020101
  2. TEMAZEPAM [Concomitant]
  3. CHLORDIAZEPOXIDE [Concomitant]
  4. ALL OTHER THERAPEUTIC PRODUCTS (ALL OTHER THERAPEUTIC PRODUCTS) [Concomitant]
  5. FLUTICASONE PROPIONATE [Concomitant]
  6. SALBUTAMOL (SALBUTAMOL) [Concomitant]
  7. COMBIVENT [Concomitant]
  8. GLYBURIDE [Concomitant]
  9. ZAFIRLUKAST (ZAFIRLUKAST) [Concomitant]
  10. DILTIAZEM [Concomitant]
  11. ESOMEPRAZOLE IESOMEPRAZOLE) [Concomitant]
  12. FUROSEMIDE [Concomitant]
  13. SIMVASTATIN (SIMVASTTIN) [Concomitant]

REACTIONS (4)
  - HIP ARTHROPLASTY [None]
  - KNEE ARTHROPLASTY [None]
  - MEDICATION ERROR [None]
  - POST PROCEDURAL PAIN [None]
